FAERS Safety Report 9207765 (Version 8)
Quarter: 2014Q1

REPORT INFORMATION
  Report Type: Report from Study
  Country: DE (occurrence: DE)
  Receive Date: 20130403
  Receipt Date: 20140318
  Transmission Date: 20141002
  Serious: Yes (Hospitalization)
  Sender: FDA-Public Use
  Company Number: DE-ROCHE-1209341

PATIENT
  Age: 65 Year
  Sex: Female
  Weight: 69.9 kg

DRUGS (24)
  1. PEG-INTERFERON ALFA 2A [Suspect]
     Indication: CHRONIC HEPATITIS C
     Route: 058
     Dates: start: 20121029, end: 20121203
  2. PEG-INTERFERON ALFA 2A [Suspect]
     Route: 058
     Dates: start: 20121210, end: 20130415
  3. PEG-INTERFERON ALFA 2A [Suspect]
     Route: 058
     Dates: start: 20130506, end: 20130506
  4. PEG-INTERFERON ALFA 2A [Suspect]
     Route: 058
     Dates: start: 20121210, end: 20130506
  5. RIBAVIRIN [Suspect]
     Indication: CHRONIC HEPATITIS C
     Dosage: QPM
     Route: 048
     Dates: start: 20121029, end: 20121209
  6. RIBAVIRIN [Suspect]
     Route: 048
     Dates: start: 20121030, end: 20130121
  7. RIBAVIRIN [Suspect]
     Dosage: TWO CAPSULES IN MORNING AND TWO CAPSULES IN EVENING.
     Route: 048
     Dates: start: 20121210, end: 20130512
  8. RIBAVIRIN [Suspect]
     Dosage: QONE CAPSULE IN MORNING AND TWO CAPSUES IN EVENING.
     Route: 048
     Dates: start: 20130122, end: 20130512
  9. RIBAVIRIN [Suspect]
     Route: 048
     Dates: start: 20130513, end: 20130513
  10. BOCEPREVIR [Suspect]
     Indication: CHRONIC HEPATITIS C
     Route: 048
     Dates: start: 20121127, end: 20121127
  11. BOCEPREVIR [Suspect]
     Dosage: IN MORINING
     Route: 048
     Dates: start: 20130513, end: 20130513
  12. BOCEPREVIR [Suspect]
     Route: 048
     Dates: start: 20130512, end: 20130512
  13. BOCEPREVIR [Suspect]
     Route: 048
     Dates: start: 20121128, end: 20130512
  14. RIBAVIRIN [Suspect]
     Indication: CHRONIC HEPATITIS C
     Dosage: 3 CAPSULES, QPM
     Route: 048
     Dates: start: 20121029, end: 20121209
  15. RIBAVIRIN [Suspect]
     Dosage: 2CAPSULES AM, 3CAPSULES PM
     Route: 048
     Dates: start: 20121113, end: 20130121
  16. RIBAVIRIN [Suspect]
     Route: 048
     Dates: start: 20121210, end: 20130415
  17. RIBAVIRIN [Suspect]
     Dosage: 1CAPSULE AM, 2CAPSULE PM, LAST DOSE PRIOR TO SAE :18/MAR/2013
     Route: 048
     Dates: start: 20121030, end: 20121112
  18. RIBAVIRIN [Suspect]
     Route: 065
     Dates: start: 20130122, end: 20130513
  19. RIBAVIRIN [Suspect]
     Route: 048
     Dates: start: 20130512, end: 20130512
  20. ONDANSETRON [Concomitant]
     Indication: PROPHYLAXIS OF NAUSEA AND VOMITING
     Route: 048
     Dates: start: 20121130, end: 20130513
  21. L-THYROXIN [Concomitant]
     Route: 065
     Dates: start: 201111
  22. PANTOPRAZOLE [Concomitant]
     Route: 065
     Dates: start: 20121112, end: 20130714
  23. FENISTIL (GERMANY) [Concomitant]
     Route: 065
     Dates: start: 20121112, end: 20130902
  24. ACETAMINOPHEN [Concomitant]
     Route: 065
     Dates: start: 20121029, end: 20130513

REACTIONS (1)
  - Syncope [Recovered/Resolved]
